FAERS Safety Report 8260027-9 (Version None)
Quarter: 2012Q1

REPORT INFORMATION
  Report Type: 
  Country: None (occurrence: None)
  Receive Date: 20120327
  Receipt Date: 20080424
  Transmission Date: 20120608
  Serious: Yes (Other)
  Sender: FDA-Public Use
  Company Number: PHEH2008US01394

PATIENT
  Age: 56 Year
  Sex: Female
  Weight: 60.1 kg

DRUGS (4)
  1. CRESTOR [Suspect]
     Indication: BLOOD CHOLESTEROL INCREASED
     Dosage: 5 MG, QD, ORAL
     Route: 048
     Dates: end: 20080109
  2. GLEEVEC [Suspect]
     Indication: CHRONIC MYELOID LEUKAEMIA
     Dosage: 400 MG, QD, ORAL
     Route: 048
     Dates: start: 20070827, end: 20080110
  3. FOSAMAX [Suspect]
     Indication: OSTEOPOROSIS
     Dates: end: 20080109
  4. FOSAMAX [Suspect]
     Indication: OSTEOPOROSIS
     Dates: end: 20080109

REACTIONS (7)
  - LIVER FUNCTION TEST ABNORMAL [None]
  - ULTRASOUND LIVER [None]
  - BIOPSY LIVER [None]
  - HEPATITIS [None]
  - HYPERSENSITIVITY [None]
  - ASPARTATE AMINOTRANSFERASE INCREASED [None]
  - HEPATOCELLULAR INJURY [None]
